FAERS Safety Report 22169283 (Version 1)
Quarter: 2023Q2

REPORT INFORMATION
  Report Type: Spontaneous
  Country: PR (occurrence: PR)
  Receive Date: 20230404
  Receipt Date: 20230404
  Transmission Date: 20230722
  Serious: Yes (Hospitalization)
  Sender: FDA-Public Use
  Company Number: PR-JNJFOC-20230363485

PATIENT

DRUGS (1)
  1. TECVAYLI [Suspect]
     Active Substance: TECLISTAMAB-CQYV
     Indication: Plasma cell myeloma
     Dosage: 3 DOSES WITH TECVAYLI (STEP-UP DOSE 1, 2 AND MAINTENANCE DOSE)
     Route: 065

REACTIONS (2)
  - Dehydration [Unknown]
  - Diarrhoea [Unknown]
